FAERS Safety Report 7969390-7 (Version None)
Quarter: 2011Q4

REPORT INFORMATION
  Report Type: 
  Country: None (occurrence: None)
  Receive Date: 20111211
  Receipt Date: 20050810
  Transmission Date: 20120403
  Serious: Yes (Other)
  Sender: FDA-Public Use
  Company Number: PHHY2005MX007058

PATIENT
  Age: 93 Year
  Sex: Female

DRUGS (4)
  1. TECTA (PANTOPRAZOLE) [Concomitant]
     Indication: GASTROINTESTINAL HAEMORRHAGE
  2. DOLAC [Concomitant]
     Indication: PAIN
  3. ACXION (PHENTERMINE) [Concomitant]
     Indication: INSOMNIA
  4. DIOVAN [Suspect]
     Indication: HYPERTENSION
     Dosage: 160 MG, QD
     Dates: start: 20050401

REACTIONS (2)
  - HEMIPARESIS [None]
  - APHASIA [None]
